FAERS Safety Report 24023219 (Version 9)
Quarter: 2024Q3

REPORT INFORMATION
  Report Type: Report from Study
  Country: TR (occurrence: TR)
  Receive Date: 20240627
  Receipt Date: 20240710
  Transmission Date: 20241017
  Serious: No
  Sender: ROCHE
  Company Number: TR-ROCHE-3094539

PATIENT
  Age: 37 Year
  Sex: Male
  Weight: 65.0 kg

DRUGS (21)
  1. ALECTINIB [Suspect]
     Active Substance: ALECTINIB
     Indication: Lung cancer metastatic
     Route: 048
     Dates: start: 20210611
  2. ALECTINIB [Suspect]
     Active Substance: ALECTINIB
     Route: 048
     Dates: start: 20210324
  3. GERALGINE-K [Concomitant]
     Indication: Bone pain
     Dosage: 20 TABLET
     Route: 065
     Dates: start: 20210310
  4. BEVACIZUMAB [Concomitant]
     Active Substance: BEVACIZUMAB
     Indication: Radiation necrosis
     Route: 065
     Dates: start: 20221031, end: 20221103
  5. BEVACIZUMAB [Concomitant]
     Active Substance: BEVACIZUMAB
     Route: 042
     Dates: start: 20220517, end: 20220614
  6. BEVACIZUMAB [Concomitant]
     Active Substance: BEVACIZUMAB
     Route: 042
     Dates: start: 20221103, end: 20221215
  7. BEVACIZUMAB [Concomitant]
     Active Substance: BEVACIZUMAB
     Route: 042
     Dates: start: 20230522, end: 20230605
  8. BEVACIZUMAB [Concomitant]
     Active Substance: BEVACIZUMAB
     Dates: start: 20230106, end: 20231028
  9. DELTACORTRIL [Concomitant]
     Active Substance: PREDNISOLONE
     Route: 048
     Dates: start: 20210907, end: 20231029
  10. SULFASALAZINE [Concomitant]
     Active Substance: SULFASALAZINE
     Route: 048
     Dates: start: 20210907, end: 20231029
  11. D-COLEFOR [Concomitant]
     Indication: Vitamin D deficiency
     Route: 048
     Dates: start: 20210907
  12. KEPPRA [Concomitant]
     Active Substance: LEVETIRACETAM
     Route: 048
     Dates: start: 20220825
  13. BENADAY [Concomitant]
     Indication: Adverse event
     Route: 048
     Dates: start: 20220614, end: 20221003
  14. LORLATINIB [Concomitant]
     Active Substance: LORLATINIB
     Dates: start: 20221103, end: 20231028
  15. LORLATINIB [Concomitant]
     Active Substance: LORLATINIB
     Dates: start: 20230106, end: 20231028
  16. LANSOPRAZOLE [Concomitant]
     Active Substance: LANSOPRAZOLE
     Route: 048
     Dates: start: 20210317
  17. DEXAMETHASONE [Concomitant]
     Active Substance: DEXAMETHASONE
     Indication: Oedema
     Route: 048
     Dates: start: 20210317
  18. CIPRALEX [Concomitant]
     Active Substance: ESCITALOPRAM OXALATE
     Indication: Depression
     Route: 048
     Dates: start: 20221003
  19. BACTROBAN [Concomitant]
     Active Substance: MUPIROCIN CALCIUM
     Route: 008
     Dates: start: 20220517
  20. TANFLEX [Concomitant]
     Indication: Stomatitis
     Route: 048
     Dates: start: 20220614
  21. EPINEPHRINE\LIDOCAINE HYDROCHLORIDE [Concomitant]
     Active Substance: EPINEPHRINE\LIDOCAINE HYDROCHLORIDE
     Indication: Stomatitis
     Dosage: 2 AMPULE
     Route: 048
     Dates: start: 20220614

REACTIONS (2)
  - Hypoaesthesia [Unknown]
  - Oedema peripheral [Unknown]

NARRATIVE: CASE EVENT DATE: 20220223
